FAERS Safety Report 9137644 (Version 1)
Quarter: 2013Q1

REPORT INFORMATION
  Report Type: Report from Study
  Country: DE (occurrence: DE)
  Receive Date: 20130304
  Receipt Date: 20130304
  Transmission Date: 20140127
  Serious: Yes (Hospitalization, Other)
  Sender: FDA-Public Use
  Company Number: DE-ABBOTT-13P-062-1055481-00

PATIENT
  Age: 23 None
  Sex: Male
  Weight: 55.6 kg

DRUGS (5)
  1. HUMIRA [Suspect]
     Indication: CROHN^S DISEASE
     Route: 058
     Dates: start: 200909, end: 201204
  2. BUDENOFALK [Concomitant]
     Indication: CROHN^S DISEASE
     Route: 048
  3. IRON II GLYCINE SUPHATE COMPLEX (FERRANOSOL DUODENAL) [Concomitant]
     Indication: PRODUCT USED FOR UNKNOWN INDICATION
  4. FOLSAN [Concomitant]
     Indication: PRODUCT USED FOR UNKNOWN INDICATION
  5. PANTOZOL [Concomitant]
     Indication: PRODUCT USED FOR UNKNOWN INDICATION

REACTIONS (4)
  - Pyloric stenosis [Unknown]
  - Gastrointestinal haemorrhage [Recovered/Resolved]
  - Gastrointestinal oedema [Unknown]
  - Gastrointestinal erosion [Unknown]
